FAERS Safety Report 6428959-1 (Version None)
Quarter: 2009Q4

REPORT INFORMATION
  Report Type: 
  Country: None (occurrence: None)
  Receive Date: 20091102
  Receipt Date: 20091021
  Transmission Date: 20100525
  Serious: Yes (Hospitalization)
  Sender: FDA-Public Use
  Company Number: 231818J09USA

PATIENT
  Age: 48 Year
  Sex: Male
  Weight: 113 kg

DRUGS (7)
  1. REBIF [Suspect]
     Indication: MULTIPLE SCLEROSIS
     Dosage: 44 MCG, 3 IN 1 WEEKS, SUBCUTANEOUS
     Route: 058
     Dates: start: 20090125
  2. OXYCODONE HCL [Concomitant]
  3. PROZAC [Concomitant]
  4. METOPROLOL (METOPROLOL /00376901/) [Concomitant]
  5. LISINOPRIL AND HYDROCHLOROTHIAZIDE (PRINZIDE /00977901/) [Concomitant]
  6. TESTOSTERONE [Concomitant]
  7. ASPIRIN [Concomitant]

REACTIONS (8)
  - BACK PAIN [None]
  - GROIN PAIN [None]
  - INJECTION SITE IRRITATION [None]
  - INTERVERTEBRAL DISC DISORDER [None]
  - INTERVERTEBRAL DISC PROTRUSION [None]
  - MUSCULOSKELETAL STIFFNESS [None]
  - PAIN [None]
  - SPINAL OSTEOARTHRITIS [None]
